FAERS Safety Report 6583888-8 (Version None)
Quarter: 2010Q1

REPORT INFORMATION
  Report Type: 
  Country: None (occurrence: None)
  Receive Date: 20100216
  Receipt Date: 20100203
  Transmission Date: 20100710
  Serious: No
  Sender: FDA-Public Use
  Company Number: US-ABBOTT-09P-163-0610069-00

PATIENT
  Sex: Male
  Weight: 95.34 kg

DRUGS (2)
  1. SIMCOR [Suspect]
     Indication: LOW DENSITY LIPOPROTEIN INCREASED
     Dosage: 500/20
     Dates: start: 20090701, end: 20090801
  2. SIMCOR [Suspect]
     Dates: start: 20091001

REACTIONS (3)
  - FLUSHING [None]
  - MUSCLE STRAIN [None]
  - SENSATION OF HEAVINESS [None]
